FAERS Safety Report 25155273 (Version 2)
Quarter: 2025Q2

REPORT INFORMATION
  Report Type: Report from Study
  Country: US (occurrence: US)
  Receive Date: 20250403
  Receipt Date: 20250424
  Transmission Date: 20250716
  Serious: Yes (Hospitalization)
  Sender: AGIOS PHARMACEUTICALS
  Company Number: US-AGIOS-2503US04151

PATIENT
  Age: 17 Year
  Sex: Male

DRUGS (1)
  1. MITAPIVAT [Suspect]
     Active Substance: MITAPIVAT
     Indication: Pyruvate kinase deficiency anaemia
     Route: 065
     Dates: start: 20250103

REACTIONS (4)
  - Influenza [Unknown]
  - Pyrexia [Unknown]
  - Haemoglobin decreased [Unknown]
  - Product dose omission issue [Unknown]

NARRATIVE: CASE EVENT DATE: 20250315
